FAERS Safety Report 10730996 (Version 2)
Quarter: 2015Q1

REPORT INFORMATION
  Report Type: Spontaneous
  Country: US (occurrence: US)
  Receive Date: 20150122
  Receipt Date: 20150326
  Transmission Date: 20150721
  Serious: No
  Sender: FDA-Public Use
  Company Number: US-PFIZER INC-2015019348

PATIENT
  Sex: Female
  Weight: 59 kg

DRUGS (2)
  1. METOPROLOL [Concomitant]
     Active Substance: METOPROLOL
     Indication: BLOOD PRESSURE
     Dosage: UNK
  2. FLECTOR [Suspect]
     Active Substance: DICLOFENAC EPOLAMINE
     Indication: BACK PAIN
     Dosage: 1.3 PERCENT PATCH, APPLY 1 PATCH TO THE AFFECTED AREA EVERY 12 HOURS
     Route: 062

REACTIONS (2)
  - Wrong patient received medication [Unknown]
  - Drug ineffective [Unknown]
